FAERS Safety Report 7699238-X (Version None)
Quarter: 2011Q3

REPORT INFORMATION
  Report Type: 
  Country: None (occurrence: None)
  Receive Date: 20110819
  Receipt Date: 20110804
  Transmission Date: 20111222
  Serious: No
  Sender: FDA-Public Use
  Company Number: US-BAYER-2011-069704

PATIENT
  Sex: Female

DRUGS (1)
  1. MIRENA [Suspect]
     Indication: CONTRACEPTION
     Dosage: 20 ?G/D, CONT
     Route: 015
     Dates: start: 20110101

REACTIONS (8)
  - MOOD ALTERED [None]
  - BACK PAIN [None]
  - HOT FLUSH [None]
  - PAIN [None]
  - HEADACHE [None]
  - DYSPAREUNIA [None]
  - MUSCLE SPASMS [None]
  - WEIGHT LOSS POOR [None]
